FAERS Safety Report 6326377-8 (Version None)
Quarter: 2009Q3

REPORT INFORMATION
  Report Type: 
  Country: None (occurrence: None)
  Receive Date: 20090821
  Receipt Date: 20090817
  Transmission Date: 20100115
  Serious: Yes (Other)
  Sender: FDA-Public Use
  Company Number: 1196CARBOCISETOPO09

PATIENT
  Age: 35 Year
  Sex: Male

DRUGS (5)
  1. CARBOPLATIN [Suspect]
     Indication: TESTIS CANCER
     Dosage: IV
     Route: 042
     Dates: start: 20081124, end: 20090310
  2. ETOPOSIDE [Suspect]
     Indication: TESTIS CANCER
     Dosage: IV
     Route: 042
     Dates: start: 20081104, end: 20090310
  3. CISPLATIN [Suspect]
     Indication: TESTIS CANCER
     Dosage: IV
     Route: 042
     Dates: start: 20081104, end: 20081101
  4. BLEOMYCIN SULFATE [Suspect]
     Indication: TESTIS CANCER
     Dosage: 1000-15000 IE/M2; 1 COURSE OR 5 COURSES, REDUCED DOSES; IV
     Route: 042
     Dates: start: 20081104
  5. PREDNISOLONE [Suspect]
     Dosage: UNK DOSE

REACTIONS (3)
  - HAEMODIALYSIS [None]
  - MALAISE [None]
  - PULMONARY FIBROSIS [None]
